FAERS Safety Report 14161758 (Version 1)
Quarter: 2017Q4

REPORT INFORMATION
  Report Type: Spontaneous
  Country: US (occurrence: US)
  Receive Date: 20171105
  Receipt Date: 20171105
  Transmission Date: 20180321
  Serious: Yes (Hospitalization, Disabling, Other)
  Sender: FDA-Public Use
  Company Number: None

PATIENT
  Age: 74 Year
  Sex: Female
  Weight: 67.5 kg

DRUGS (14)
  1. OXYGEN MACHINE [Concomitant]
  2. DEPAKOTE [Concomitant]
     Active Substance: DIVALPROEX SODIUM
  3. ATENENOL [Concomitant]
  4. MAGNESIUM [Concomitant]
     Active Substance: MAGNESIUM
  5. FISH OIL [Concomitant]
     Active Substance: FISH OIL
  6. DEPAKOTE [Concomitant]
     Active Substance: DIVALPROEX SODIUM
  7. SOMA [Concomitant]
     Active Substance: CARISOPRODOL
  8. LISIINOPRIL [Concomitant]
  9. HERBAL INTESTINAL CLEANSER [Concomitant]
  10. METOPROPOL [Concomitant]
  11. COQ10 [Concomitant]
     Active Substance: UBIDECARENONE
  12. CLONAZEPAM. [Suspect]
     Active Substance: CLONAZEPAM
     Indication: ANXIETY
     Route: 048
     Dates: start: 19950215
  13. BREATHING MACHINE [Concomitant]
  14. PROBIOTICS [Concomitant]
     Active Substance: PROBIOTICS NOS

REACTIONS (12)
  - Seizure [None]
  - Incorrect dose administered [None]
  - Pain [None]
  - Neuropathy peripheral [None]
  - Drug dispensing error [None]
  - Nerve injury [None]
  - Impaired quality of life [None]
  - Hyperacusis [None]
  - Paraesthesia [None]
  - Epilepsy [None]
  - Insomnia [None]
  - Bedridden [None]

NARRATIVE: CASE EVENT DATE: 20130412
